FAERS Safety Report 17125225 (Version 2)
Quarter: 2019Q4

REPORT INFORMATION
  Report Type: Spontaneous
  Country: US (occurrence: US)
  Receive Date: 20191206
  Receipt Date: 20191218
  Transmission Date: 20200122
  Serious: Yes (Life-Threatening, Hospitalization, Other)
  Sender: FDA-Public Use
  Company Number: US-AUROBINDO-AUR-APL-2019-076256

PATIENT
  Age: 52 Year
  Sex: Female

DRUGS (6)
  1. SERTRALINE [Interacting]
     Active Substance: SERTRALINE HYDROCHLORIDE
     Indication: MAJOR DEPRESSION
     Dosage: 200 MILLIGRAM, ONCE A DAY
     Route: 065
  2. TRAZODONE [Interacting]
     Active Substance: TRAZODONE HYDROCHLORIDE
     Indication: MAJOR DEPRESSION
     Dosage: 200 MILLIGRAM, ONCE A DAY
     Route: 065
  3. LIDOCAINE INJECTION [Suspect]
     Active Substance: LIDOCAINE
     Indication: HEADACHE
     Dosage: 2 MG/MIN (ON DAY 2)
     Route: 041
  4. GABAPENTIN. [Concomitant]
     Active Substance: GABAPENTIN
     Indication: PRODUCT USED FOR UNKNOWN INDICATION
     Dosage: 600 MILLIGRAM
     Route: 065
  5. LIDOCAINE INJECTION [Suspect]
     Active Substance: LIDOCAINE
     Indication: HEADACHE
     Dosage: 1 MG/MIN (ON DAY 1)
     Route: 041
  6. METFORMIN [Concomitant]
     Active Substance: METFORMIN HYDROCHLORIDE
     Indication: PRODUCT USED FOR UNKNOWN INDICATION
     Dosage: 1000 MILLIGRAM, ONCE A DAY
     Route: 065

REACTIONS (12)
  - Drug interaction [Unknown]
  - Balance disorder [Unknown]
  - Drug level increased [Recovered/Resolved]
  - Dizziness [Unknown]
  - Bradycardia [Unknown]
  - Pulseless electrical activity [Unknown]
  - Toxicity to various agents [Unknown]
  - Cardiac arrest [Unknown]
  - Nausea [Unknown]
  - Nystagmus [Unknown]
  - Blood alkaline phosphatase increased [Unknown]
  - Syncope [Unknown]
